FAERS Safety Report 19865993 (Version 1)
Quarter: 2021Q3

REPORT INFORMATION
  Report Type: Spontaneous
  Country: NL (occurrence: NL)
  Receive Date: 20210921
  Receipt Date: 20210921
  Transmission Date: 20211014
  Serious: Yes (Hospitalization)
  Sender: FDA-Public Use
  Company Number: NL-MYLANLABS-2021M1063772

PATIENT
  Sex: Female
  Weight: 59 kg

DRUGS (2)
  1. DILTIAZEM. [Suspect]
     Active Substance: DILTIAZEM
     Indication: PRODUCT USED FOR UNKNOWN INDICATION
     Dosage: 2X HALVE TABLET
     Dates: start: 20210211, end: 20210330
  2. ACETYLSALICYLZUUR [Concomitant]
     Active Substance: ASPIRIN

REACTIONS (3)
  - Anxiety [Recovered/Resolved]
  - Blood pressure fluctuation [Recovered/Resolved]
  - Depressed mood [Recovered/Resolved]
